FAERS Safety Report 7429675-X (Version None)
Quarter: 2011Q2

REPORT INFORMATION
  Report Type: 
  Country: None (occurrence: None)
  Receive Date: 20110421
  Receipt Date: 20110412
  Transmission Date: 20111010
  Serious: Yes (Other)
  Sender: FDA-Public Use
  Company Number: GB-ASTRAZENECA-2011SE20866

PATIENT
  Age: 33 Year
  Sex: Female
  Weight: 62.4 kg

DRUGS (9)
  1. MEROPENEM [Suspect]
     Indication: CYSTIC FIBROSIS LUNG
     Route: 042
     Dates: start: 20110401, end: 20110401
  2. TOBRAMYCIN [Concomitant]
  3. VITAMIN A AND D CONCENTRATE [Concomitant]
  4. CREON [Concomitant]
  5. VITAMIN E [Concomitant]
  6. AZITHROMYCIN [Concomitant]
  7. SALMETEROL [Concomitant]
  8. NORMAL SALINE [Concomitant]
  9. ALBUTEROL SULFATE AUTOHALER [Concomitant]

REACTIONS (1)
  - VERTIGO [None]
